FAERS Safety Report 4613016-7 (Version None)
Quarter: 2005Q1

REPORT INFORMATION
  Report Type: 
  Country: None (occurrence: None)
  Receive Date: 20050318
  Receipt Date: 20041130
  Transmission Date: 20050727
  Serious: Yes (Death, Hospitalization)
  Sender: FDA-Public Use
  Company Number: JP-MERCK-0412USA00420

PATIENT
  Age: 66 Year
  Sex: Female
  Weight: 37 kg

DRUGS (8)
  1. DECADRON [Suspect]
     Indication: MULTIPLE MYELOMA
     Route: 048
     Dates: start: 20021023, end: 20021026
  2. DECADRON [Suspect]
     Route: 048
     Dates: start: 20021101, end: 20021104
  3. VINCRISTINE SULFATE [Concomitant]
     Indication: MULTIPLE MYELOMA
     Route: 065
     Dates: start: 20021026
  4. DOXORUBICIN HYDROCHLORIDE [Concomitant]
     Indication: MULTIPLE MYELOMA
     Route: 065
     Dates: start: 20021026
  5. ENDOXAN [Concomitant]
     Indication: MULTIPLE MYELOMA
     Route: 051
     Dates: start: 20021023, end: 20021025
  6. KYTRIL [Concomitant]
     Indication: PROPHYLAXIS
     Route: 051
     Dates: start: 20021023, end: 20021025
  7. [THERAPY UNSPECIFIED] [Concomitant]
     Indication: PROPHYLAXIS
     Route: 051
     Dates: start: 20021023, end: 20021025
  8. ZANTAC [Concomitant]
     Indication: PROPHYLAXIS
     Route: 048
     Dates: start: 20021023, end: 20021026

REACTIONS (2)
  - HYPERGLYCAEMIA [None]
  - MULTIPLE MYELOMA [None]
